FAERS Safety Report 11774847 (Version 2)
Quarter: 2016Q1

REPORT INFORMATION
  Report Type: Spontaneous
  Country: GB (occurrence: GB)
  Receive Date: 20151124
  Receipt Date: 20160129
  Transmission Date: 20160525
  Serious: Yes (Other)
  Sender: FDA-Public Use
  Company Number: GB-BAUSCH-BL-2015-027514

PATIENT
  Age: 37 Year
  Sex: Female

DRUGS (6)
  1. PREDNISOLONE. [Suspect]
     Active Substance: PREDNISOLONE
     Indication: INFLAMMATION
     Route: 065
  2. CYCLIZINE [Suspect]
     Active Substance: CYCLIZINE
     Indication: PAIN
     Route: 065
  3. CYCLIZINE [Suspect]
     Active Substance: CYCLIZINE
     Route: 065
  4. DIPIPANONE [Suspect]
     Active Substance: DIPIPANONE HYDROCHLORIDE
     Route: 065
  5. LYRICA [Concomitant]
     Active Substance: PREGABALIN
     Indication: NEURALGIA
  6. DIPIPANONE [Suspect]
     Active Substance: DIPIPANONE HYDROCHLORIDE
     Indication: PAIN
     Route: 065

REACTIONS (5)
  - Osteoporosis [Unknown]
  - Spinal compression fracture [Unknown]
  - Spinal fracture [Unknown]
  - Bone disorder [Unknown]
  - Pain [Unknown]
